FAERS Safety Report 4642328-6 (Version None)
Quarter: 2005Q2

REPORT INFORMATION
  Report Type: 
  Country: None (occurrence: None)
  Receive Date: 20050420
  Receipt Date: 20050406
  Transmission Date: 20051028
  Serious: Yes (Hospitalization)
  Sender: FDA-Public Use
  Company Number: AWBNIASPAND2004-68

PATIENT
  Age: 63 Year
  Sex: Female

DRUGS (5)
  1. NIASPAN [Suspect]
     Indication: DYSLIPIDAEMIA
     Dosage: 500 MG QD PO
     Route: 048
     Dates: start: 20050217, end: 20050324
  2. RAMIPRIL [Concomitant]
  3. NITRENDIPINE [Concomitant]
  4. INSULIN [Concomitant]
  5. FENOFIBRATE [Concomitant]

REACTIONS (5)
  - ABDOMINAL PAIN UPPER [None]
  - CHOLANGITIS [None]
  - HEPATITIS [None]
  - HEPATOMEGALY [None]
  - TRANSAMINASES INCREASED [None]
